FAERS Safety Report 9807415 (Version 1)
Quarter: 2014Q1

REPORT INFORMATION
  Report Type: Spontaneous
  Country: US (occurrence: US)
  Receive Date: 20140110
  Receipt Date: 20140110
  Transmission Date: 20141002
  Serious: No
  Sender: FDA-Public Use
  Company Number: US-TARO-2012P1067868

PATIENT
  Age: 49 Year
  Sex: Female
  Weight: 44 kg

DRUGS (2)
  1. TRIAMCINOLONE ACETONIDE [Suspect]
     Route: 061
     Dates: start: 20121213
  2. PREDNISONE INJECTIONS [Concomitant]

REACTIONS (2)
  - Application site pain [Recovering/Resolving]
  - Psoriasis [Recovering/Resolving]
